FAERS Safety Report 19309599 (Version 2)
Quarter: 2021Q2

REPORT INFORMATION
  Report Type: Spontaneous
  Country: US (occurrence: US)
  Receive Date: 20210526
  Receipt Date: 20210611
  Transmission Date: 20210717
  Serious: Yes (Hospitalization)
  Sender: FDA-Public Use
  Company Number: US-AZURITY PHARMACEUTICALS, INC.-2021AZY00048

PATIENT
  Sex: Female

DRUGS (3)
  1. XATMEP [Suspect]
     Active Substance: METHOTREXATE
     Dosage: 14.75 MG, 1X/WEEK
     Route: 048
  2. PURIXAN [Concomitant]
     Active Substance: MERCAPTOPURINE
  3. BACTRIM [Concomitant]
     Active Substance: SULFAMETHOXAZOLE\TRIMETHOPRIM

REACTIONS (1)
  - Hospitalisation [Unknown]
